FAERS Safety Report 5911951-0 (Version None)
Quarter: 2008Q4

REPORT INFORMATION
  Report Type: 
  Country: None (occurrence: None)
  Receive Date: 20081008
  Receipt Date: 20080929
  Transmission Date: 20090506
  Serious: Yes (Other)
  Sender: FDA-Public Use
  Company Number: PHBS2008TR05883

PATIENT
  Age: 40 Year
  Sex: Male

DRUGS (5)
  1. GLEEVEC [Suspect]
     Indication: CHRONIC MYELOID LEUKAEMIA
     Dosage: 400 MG/DAY
     Route: 048
     Dates: start: 20030101
  2. BLEOMYCIN SULFATE [Suspect]
     Indication: MALIGNANT MESENCHYMOMA
     Dosage: 30 MG/DAY
     Route: 065
     Dates: start: 20040301
  3. CISPLATIN [Suspect]
     Indication: MALIGNANT MESENCHYMOMA
     Dosage: 40 MG/DAY
     Route: 065
     Dates: start: 20040301
  4. ETOPOSIDE [Suspect]
     Indication: MALIGNANT MESENCHYMOMA
     Dosage: 200 MG/DAY, DAYS 1, 2, 3, 4 Q3W
     Dates: start: 20040301
  5. HYDROXYUREA [Concomitant]
     Indication: CHRONIC MYELOID LEUKAEMIA
     Dosage: UNK
     Dates: start: 20030101

REACTIONS (5)
  - HAEMOGLOBIN DECREASED [None]
  - NECK MASS [None]
  - NEOPLASM MALIGNANT [None]
  - NEUTROPENIA [None]
  - THROMBOCYTOPENIA [None]
